FAERS Safety Report 19953893 (Version 1)
Quarter: 2021Q4

REPORT INFORMATION
  Report Type: Spontaneous
  Country: US (occurrence: US)
  Receive Date: 20211011
  Receipt Date: 20211011
  Transmission Date: 20220303
  Serious: No
  Sender: FDA-Public Use
  Company Number: None

PATIENT
  Age: 58 Year
  Sex: Female

DRUGS (1)
  1. BOTOX [Suspect]
     Active Substance: ONABOTULINUMTOXINA
     Indication: Migraine
     Dosage: ?          OTHER FREQUENCY:EVERY12WEEKS ;
     Route: 030
     Dates: start: 20210728

REACTIONS (2)
  - Facial paralysis [None]
  - Therapy non-responder [None]

NARRATIVE: CASE EVENT DATE: 20211003
